FAERS Safety Report 23422924 (Version 1)
Quarter: 2024Q1

REPORT INFORMATION
  Report Type: Spontaneous
  Country: US (occurrence: None)
  Receive Date: 20240119
  Receipt Date: 20240119
  Transmission Date: 20240410
  Serious: Yes (Hospitalization)
  Sender: FDA-Public Use
  Company Number: None

PATIENT
  Sex: Male

DRUGS (2)
  1. ILLUCCIX [Suspect]
     Active Substance: GALLIUM GA-68 GOZETOTIDE
     Indication: Diagnostic procedure
     Dosage: OTHER STRENGTH : MCI;?OTHER QUANTITY : 1 INJECTION(S);?OTHER FREQUENCY : 1;?
     Route: 042
     Dates: start: 20240118, end: 20240118
  2. ILLUCCIX [Suspect]
     Active Substance: GALLIUM GA-68 GOZETOTIDE
     Indication: Prostate cancer

REACTIONS (3)
  - Seizure [None]
  - Cardio-respiratory arrest [None]
  - Blood glucose decreased [None]

NARRATIVE: CASE EVENT DATE: 20240118
